FAERS Safety Report 18123509 (Version 2)
Quarter: 2020Q3

REPORT INFORMATION
  Report Type: Spontaneous
  Country: US (occurrence: US)
  Receive Date: 20200807
  Receipt Date: 20200907
  Transmission Date: 20201103
  Serious: Yes (Hospitalization)
  Sender: FDA-Public Use
  Company Number: NVSC2020US219005

PATIENT
  Sex: Female

DRUGS (1)
  1. DICLOXACILLIN [Suspect]
     Active Substance: DICLOXACILLIN
     Indication: MASTITIS
     Dosage: UNK
     Route: 065

REACTIONS (3)
  - Herpes simplex [Recovered/Resolved]
  - Product use in unapproved indication [Unknown]
  - Maternal exposure during breast feeding [Unknown]
